FAERS Safety Report 9181567 (Version 1)
Quarter: 2013Q1

REPORT INFORMATION
  Report Type: Spontaneous
  Country: US (occurrence: US)
  Receive Date: 20130322
  Receipt Date: 20130322
  Transmission Date: 20140127
  Serious: Yes (Other)
  Sender: FDA-Public Use
  Company Number: US-BAYER-2013-034630

PATIENT
  Age: 43 Year
  Sex: Female
  Weight: 88.44 kg

DRUGS (4)
  1. YAZ [Suspect]
  2. GIANVI [Suspect]
  3. YASMIN [Suspect]
  4. OCELLA [Suspect]

REACTIONS (1)
  - Thrombophlebitis superficial [None]
